FAERS Safety Report 16246798 (Version 1)
Quarter: 2019Q2

REPORT INFORMATION
  Report Type: Spontaneous
  Country: GB (occurrence: GB)
  Receive Date: 20190427
  Receipt Date: 20190427
  Transmission Date: 20190711
  Serious: Yes (Hospitalization, Disabling, Other)
  Sender: FDA-Public Use
  Company Number: GB-ACCORD-124156

PATIENT
  Age: 88 Year
  Sex: Male

DRUGS (8)
  1. AMIODARONE [Interacting]
     Active Substance: AMIODARONE
     Indication: PRODUCT USED FOR UNKNOWN INDICATION
  2. BUMETANIDE. [Interacting]
     Active Substance: BUMETANIDE
     Indication: PRODUCT USED FOR UNKNOWN INDICATION
  3. ATORVASTATIN/ATORVASTATIN CALCIUM [Suspect]
     Active Substance: ATORVASTATIN CALCIUM
     Indication: PRODUCT USED FOR UNKNOWN INDICATION
  4. CLARITHROMYCIN/CLARITHROMYCIN LACTOBIONATE [Interacting]
     Active Substance: CLARITHROMYCIN LACTOBIONATE
     Indication: CELLULITIS
     Route: 048
     Dates: start: 20190105, end: 20190118
  5. BISOPROLOL [Concomitant]
     Active Substance: BISOPROLOL
  6. RAMIPRIL. [Concomitant]
     Active Substance: RAMIPRIL
  7. PENICILLIN NOS [Concomitant]
     Active Substance: PENICILLIN
     Indication: CELLULITIS
  8. LEVOTHYROXINE. [Concomitant]
     Active Substance: LEVOTHYROXINE

REACTIONS (6)
  - Labelled drug-drug interaction medication error [Unknown]
  - Asthenia [Not Recovered/Not Resolved]
  - Weight bearing difficulty [Recovered/Resolved]
  - Fluid retention [Unknown]
  - Confusional state [Recovered/Resolved]
  - Muscular weakness [Recovered/Resolved]

NARRATIVE: CASE EVENT DATE: 201901
